FAERS Safety Report 7063146-8 (Version None)
Quarter: 2010Q4

REPORT INFORMATION
  Report Type: 
  Country: None (occurrence: None)
  Receive Date: 20101026
  Receipt Date: 20100514
  Transmission Date: 20110411
  Serious: No
  Sender: FDA-Public Use
  Company Number: US-PFIZER INC-2010061577

PATIENT
  Sex: Female

DRUGS (3)
  1. LIPITOR [Suspect]
     Dosage: UNK
  2. PRANDIN [Concomitant]
     Indication: DIABETES MELLITUS
     Dosage: UNK
  3. ACEON [Concomitant]
     Indication: BLOOD PRESSURE
     Dosage: UNK

REACTIONS (2)
  - FRUSTRATION [None]
  - MYALGIA [None]
